FAERS Safety Report 5877719-9 (Version None)
Quarter: 2008Q3

REPORT INFORMATION
  Report Type: 
  Country: None (occurrence: None)
  Receive Date: 20080911
  Receipt Date: 20080829
  Transmission Date: 20090109
  Serious: No
  Sender: FDA-Public Use
  Company Number: JP-JNJFOC-20080801425

PATIENT
  Age: 29 Year
  Sex: Female

DRUGS (4)
  1. RISPERDAL [Suspect]
     Indication: SCHIZOPHRENIA
     Route: 048
  2. ALPRAZOLAM [Concomitant]
     Route: 048
  3. HERBAL MEDICINE [Concomitant]
     Route: 048
  4. ITRACONAZOLE [Concomitant]

REACTIONS (1)
  - THROMBOCYTOPENIA [None]
